FAERS Safety Report 6163713-X (Version None)
Quarter: 2009Q2

REPORT INFORMATION
  Report Type: 
  Country: None (occurrence: None)
  Receive Date: 20090422
  Receipt Date: 20090417
  Transmission Date: 20091009
  Serious: Yes (Hospitalization)
  Sender: FDA-Public Use
  Company Number: FR-JNJFOC-20090404416

PATIENT
  Age: 39 Year
  Sex: Male

DRUGS (12)
  1. PREZISTA [Suspect]
     Route: 048
  2. PREZISTA [Suspect]
     Indication: HIV INFECTION
     Route: 048
  3. VIREAD [Concomitant]
     Route: 048
  4. VIREAD [Concomitant]
     Route: 048
  5. ZIAGEN [Concomitant]
     Route: 048
  6. ZIAGEN [Concomitant]
     Route: 048
  7. NORVIR [Concomitant]
  8. NORVIR [Concomitant]
  9. BACTRIM DS [Concomitant]
  10. BACTRIM DS [Concomitant]
  11. AZADOSE [Concomitant]
  12. AZADOSE [Concomitant]

REACTIONS (1)
  - PANCREATITIS [None]
